FAERS Safety Report 16064813 (Version 6)
Quarter: 2020Q2

REPORT INFORMATION
  Report Type: Report from Study
  Country: IT (occurrence: IT)
  Receive Date: 20190312
  Receipt Date: 20200518
  Transmission Date: 20200713
  Serious: Yes (Other)
  Sender: FDA-Public Use
  Company Number: IT-INCYTE CORPORATION-2018IN011038

PATIENT

DRUGS (9)
  1. JAKAVI [Suspect]
     Active Substance: RUXOLITINIB
     Dosage: 20 OT
     Route: 065
     Dates: start: 20200316
  2. TAVOR (LORAZEPAM) [Concomitant]
     Active Substance: LORAZEPAM
     Indication: INSOMNIA
     Dosage: 0.5 UNK, UNK
     Route: 065
  3. FENAZONE [Concomitant]
     Indication: EAR INFECTION
     Dosage: 5 OT
     Route: 065
     Dates: start: 20200203
  4. DELTACORTENE [Concomitant]
     Active Substance: PREDNISONE
     Dosage: 5 OT, UNK
     Route: 065
     Dates: start: 20190305
  5. JAKAVI [Suspect]
     Active Substance: RUXOLITINIB
     Indication: POLYCYTHAEMIA VERA
     Dosage: 20 OT, UNK
     Route: 065
     Dates: start: 20180630, end: 20200309
  6. DELTACORTENE [Concomitant]
     Active Substance: PREDNISONE
     Indication: PRURITUS
     Dosage: 15 OT, UNK
     Route: 065
     Dates: start: 20180428, end: 20190304
  7. PROCAINE [Concomitant]
     Active Substance: PROCAINE
     Indication: EAR INFECTION
     Dosage: 5 OT
     Route: 065
     Dates: start: 20200203
  8. CLAVULIN [AMOXICILLIN SODIUM;CLAVULANATE POTASSIUM] [Concomitant]
     Active Substance: AMOXICILLIN\CLAVULANATE POTASSIUM
     Indication: PRODUCT USED FOR UNKNOWN INDICATION
     Dosage: UNK
     Route: 065
  9. DELTACORTENE [Concomitant]
     Active Substance: PREDNISONE
     Dosage: 2.5 OT, UNK
     Route: 065
     Dates: start: 20190911, end: 20191126

REACTIONS (20)
  - Mean cell haemoglobin concentration increased [Unknown]
  - Blood cholesterol increased [Unknown]
  - Pyrexia [Recovered/Resolved]
  - Low density lipoprotein increased [Unknown]
  - Haemorrhoids [Recovered/Resolved]
  - Haematocrit decreased [Unknown]
  - Mean cell haemoglobin increased [Unknown]
  - C-reactive protein increased [Unknown]
  - Mean cell volume increased [Unknown]
  - Anal haemorrhage [Recovered/Resolved]
  - Prostatic specific antigen increased [Not Recovered/Not Resolved]
  - Alpha 1 globulin increased [Unknown]
  - Amoebiasis [Recovered/Resolved]
  - Red cell distribution width increased [Unknown]
  - Red blood cell count decreased [Unknown]
  - Rectal haemorrhage [Recovered/Resolved]
  - Immunoglobulins decreased [Unknown]
  - Haemoglobin decreased [Unknown]
  - Middle ear inflammation [Recovered/Resolved]
  - Protein total increased [Unknown]

NARRATIVE: CASE EVENT DATE: 20180630
